APPROVED DRUG PRODUCT: XPHOZAH
Active Ingredient: TENAPANOR HYDROCHLORIDE
Strength: EQ 10MG BASE
Dosage Form/Route: TABLET;ORAL
Application: N213931 | Product #001
Applicant: ARDELYX INC
Approved: Oct 17, 2023 | RLD: Yes | RS: No | Type: DISCN

PATENTS:
Patent 10940146 | Expires: Apr 10, 2034
Patent 10940146 | Expires: Apr 10, 2034
Patent 10272079 | Expires: Apr 10, 2034
Patent 10272079 | Expires: Apr 10, 2034
Patent 12539299 | Expires: Nov 26, 2042
Patent 8969377 | Expires: Dec 30, 2029
Patent 12016856 | Expires: Dec 30, 2029
Patent 8541448 | Expires: Aug 1, 2033

EXCLUSIVITY:
Code: NP | Date: Oct 17, 2026